FAERS Safety Report 6355724-6 (Version None)
Quarter: 2009Q3

REPORT INFORMATION
  Report Type: 
  Country: None (occurrence: None)
  Receive Date: 20090910
  Receipt Date: 20090825
  Transmission Date: 20100115
  Serious: Yes (Death, Hospitalization)
  Sender: FDA-Public Use
  Company Number: 2009AL004119

PATIENT
  Age: 59 Year
  Sex: Male

DRUGS (3)
  1. DIGOXIN [Suspect]
     Dosage: PO
     Route: 048
     Dates: start: 20051209
  2. COUMADIN [Concomitant]
  3. SPIRIVA [Concomitant]

REACTIONS (4)
  - ATRIAL FIBRILLATION [None]
  - ECONOMIC PROBLEM [None]
  - HYPOTENSION [None]
  - MULTIPLE INJURIES [None]
